FAERS Safety Report 16375235 (Version 1)
Quarter: 2019Q2

REPORT INFORMATION
  Report Type: Spontaneous
  Country: FR (occurrence: FR)
  Receive Date: 20190531
  Receipt Date: 20190531
  Transmission Date: 20190711
  Serious: Yes (Life-Threatening, Hospitalization)
  Sender: FDA-Public Use
  Company Number: FR-SCIEGEN PHARMACEUTICALS INC-2019SCILIT00187

PATIENT
  Age: 39 Year
  Sex: Female

DRUGS (5)
  1. PROPRANOLOL [Suspect]
     Active Substance: PROPRANOLOL HYDROCHLORIDE
  2. VALPROATE SEMISODIUM [Interacting]
     Active Substance: DIVALPROEX SODIUM
  3. QUETIAPINE. [Suspect]
     Active Substance: QUETIAPINE
  4. ALPRAZOLAM. [Suspect]
     Active Substance: ALPRAZOLAM
  5. DIAZEPAM. [Suspect]
     Active Substance: DIAZEPAM

REACTIONS (8)
  - Pneumonia aspiration [Unknown]
  - Electrocardiogram QRS complex shortened [Unknown]
  - Hypotension [Unknown]
  - Intentional overdose [Unknown]
  - Coma [Unknown]
  - Toxicity to various agents [Unknown]
  - Blood creatine phosphokinase increased [Unknown]
  - Drug interaction [Unknown]
